FAERS Safety Report 8489753-3 (Version None)
Quarter: 2012Q3

REPORT INFORMATION
  Report Type: 
  Country: None (occurrence: None)
  Receive Date: 20120705
  Receipt Date: 20120618
  Transmission Date: 20120928
  Serious: Yes (Other)
  Sender: FDA-Public Use
  Company Number: DE-GLAXOSMITHKLINE-D0075988A

PATIENT
  Sex: Female

DRUGS (5)
  1. TYVERB [Suspect]
     Indication: BREAST CANCER
     Dosage: 1000MG PER DAY
     Route: 048
     Dates: start: 20120123, end: 20120609
  2. FEMARA [Suspect]
     Dosage: 2.5MG UNKNOWN
     Route: 065
  3. IBANDRONATE SODIUM [Suspect]
     Route: 065
  4. BISOPROLOL FUMARATE [Suspect]
     Dosage: 2.5MG TWICE PER DAY
     Route: 065
  5. HERCEPTIN [Suspect]
     Route: 065

REACTIONS (10)
  - COORDINATION ABNORMAL [None]
  - MEMORY IMPAIRMENT [None]
  - GAIT DISTURBANCE [None]
  - DIZZINESS [None]
  - NERVOUS SYSTEM DISORDER [None]
  - TREMOR [None]
  - CONFUSIONAL STATE [None]
  - MYOCARDIAL INFARCTION [None]
  - MUSCLE SPASMS [None]
  - SPEECH DISORDER [None]
